FAERS Safety Report 16919334 (Version 14)
Quarter: 2021Q1

REPORT INFORMATION
  Report Type: Spontaneous
  Country: JP (occurrence: JP)
  Receive Date: 20191015
  Receipt Date: 20210222
  Transmission Date: 20210419
  Serious: Yes (Death, Life-Threatening, Hospitalization, Other)
  Sender: FDA-Public Use
  Company Number: JP-BRISTOL-MYERS SQUIBB COMPANY-BMS-2019-097328

PATIENT
  Age: 58 Year
  Sex: Male
  Weight: 63.5 kg

DRUGS (11)
  1. METOCLOPRAMIDE. [Concomitant]
     Active Substance: METOCLOPRAMIDE
     Indication: DISEASE COMPLICATION
     Dosage: 5 MILLIGRAM, BID
     Route: 048
  2. FUROSEMIDE. [Concomitant]
     Active Substance: FUROSEMIDE
     Indication: DISEASE COMPLICATION
     Dosage: 20 MILLIGRAM, TID
     Route: 048
  3. TRAZENTA [Concomitant]
     Active Substance: LINAGLIPTIN
     Indication: DISEASE COMPLICATION
     Dosage: 5 MILLIGRAM, QD
     Route: 048
  4. MIDODRINE HYDROCHLORIDE. [Concomitant]
     Active Substance: MIDODRINE HYDROCHLORIDE
     Indication: DISEASE COMPLICATION
     Dosage: 2 MILLIGRAM, QD
     Route: 048
  5. OPDIVO [Suspect]
     Active Substance: NIVOLUMAB
     Indication: METASTATIC RENAL CELL CARCINOMA
     Dosage: 240 MILLIGRAM
     Route: 041
     Dates: end: 20190904
  6. MEXITIL [Concomitant]
     Active Substance: MEXILETINE HYDROCHLORIDE
     Indication: DISEASE COMPLICATION
     Dosage: 50 MILLIGRAM, QD
     Route: 048
  7. TENELIA [Concomitant]
     Active Substance: TENELIGLIPTIN
     Indication: DISEASE COMPLICATION
     Dosage: 20 MILLIGRAM, QD
     Route: 048
  8. YERVOY [Suspect]
     Active Substance: IPILIMUMAB
     Indication: METASTATIC RENAL CELL CARCINOMA
     Dosage: 64 MILLIGRAM (1 MG/KG)
     Route: 041
     Dates: end: 20190904
  9. ISOSORBIDE DINITRATE. [Concomitant]
     Active Substance: ISOSORBIDE DINITRATE
     Indication: DISEASE COMPLICATION
     Dosage: 40 MILLIGRAM, BID
     Route: 048
  10. CALONAL [Concomitant]
     Active Substance: ACETAMINOPHEN
     Indication: DISEASE COMPLICATION
     Dosage: 300 MILLIGRAM, BID
     Route: 048
     Dates: start: 20190806
  11. OPHTHALM K [Concomitant]
     Indication: DISEASE COMPLICATION
     Dosage: 3 DOSAGE FORM
     Route: 048

REACTIONS (6)
  - Hepatitis fulminant [Fatal]
  - Dehydration [Not Recovered/Not Resolved]
  - Diabetes insipidus [Unknown]
  - Hypophysitis [Unknown]
  - Hepatic encephalopathy [Unknown]
  - Acute kidney injury [Not Recovered/Not Resolved]

NARRATIVE: CASE EVENT DATE: 2019
